FAERS Safety Report 17442266 (Version 1)
Quarter: 2020Q1

REPORT INFORMATION
  Report Type: Spontaneous
  Country: US (occurrence: US)
  Receive Date: 20200220
  Receipt Date: 20200220
  Transmission Date: 20200409
  Serious: Yes (Hospitalization, Other)
  Sender: FDA-Public Use
  Company Number: US-GLAXOSMITHKLINE-US2020GSK027882

PATIENT
  Age: 60 Year
  Sex: Female

DRUGS (1)
  1. PROPAFENONE. [Suspect]
     Active Substance: PROPAFENONE
     Indication: ATRIAL FIBRILLATION
     Dosage: 325 MG, BID
     Route: 048

REACTIONS (13)
  - Nausea [Recovering/Resolving]
  - Steatohepatitis [Recovering/Resolving]
  - Hepatitis cholestatic [Recovering/Resolving]
  - Jaundice [Recovered/Resolved]
  - Drug-induced liver injury [Recovering/Resolving]
  - Vomiting [Recovering/Resolving]
  - Liver function test abnormal [Recovering/Resolving]
  - Hepatic steatosis [Recovering/Resolving]
  - Cholestasis [Recovering/Resolving]
  - Portal tract inflammation [Recovering/Resolving]
  - Abdominal pain upper [Recovering/Resolving]
  - Weight decreased [Recovering/Resolving]
  - Transaminases abnormal [Recovered/Resolved]
